FAERS Safety Report 5788975-X (Version None)
Quarter: 2008Q2

REPORT INFORMATION
  Report Type: 
  Country: None (occurrence: None)
  Receive Date: 20080626
  Receipt Date: 20071108
  Transmission Date: 20081010
  Serious: No
  Sender: FDA-Public Use
  Company Number: US-ASTRAZENECA-2007UW26025

PATIENT
  Age: 19 Year
  Sex: Female

DRUGS (1)
  1. PULMICORT FLEXHALER [Suspect]
     Route: 055
     Dates: start: 20071001

REACTIONS (2)
  - DRUG INEFFECTIVE [None]
  - DYSPNOEA [None]
